FAERS Safety Report 6380081-9 (Version None)
Quarter: 2009Q3

REPORT INFORMATION
  Report Type: 
  Country: None (occurrence: None)
  Receive Date: 20090929
  Receipt Date: 20090918
  Transmission Date: 20100115
  Serious: Yes (Hospitalization, Disabling, Other)
  Sender: FDA-Public Use
  Company Number: US-BIOGENIDEC-2009BI030344

PATIENT
  Age: 61 Year
  Sex: Female
  Weight: 62 kg

DRUGS (22)
  1. TYSABRI [Suspect]
     Indication: MULTIPLE SCLEROSIS
     Route: 042
     Dates: start: 20081110, end: 20090821
  2. BACLOFEN [Concomitant]
     Route: 048
  3. PEPCID [Concomitant]
     Route: 048
  4. LISINOPRIL [Concomitant]
     Route: 048
  5. RANEXA [Concomitant]
     Route: 048
  6. TUMS [Concomitant]
  7. VITAMIN B-12 [Concomitant]
     Route: 048
  8. TRIDESILON [Concomitant]
  9. ASPIRIN [Concomitant]
     Route: 048
  10. NORVASC [Concomitant]
     Route: 048
  11. PHENERGAN [Concomitant]
     Route: 048
  12. COREG [Concomitant]
     Route: 048
  13. BUMEX [Concomitant]
     Route: 048
  14. ISOSORBIDE [Concomitant]
     Route: 048
  15. NITROSTAT [Concomitant]
     Route: 060
  16. POTASSIUM CHLORIDE [Concomitant]
     Route: 048
  17. VITAMIN AND MINERAL PRENATAL SUPPLEMENT W/ FOLIC ACID CAP [Concomitant]
     Route: 048
  18. PLAVIX [Concomitant]
     Route: 048
  19. ALDACTONE [Concomitant]
     Route: 048
  20. VITAMIN D-3 [Concomitant]
     Route: 048
  21. DILANTIN [Concomitant]
     Route: 048
  22. LIPITOR [Concomitant]
     Route: 048

REACTIONS (1)
  - TRANSIENT ISCHAEMIC ATTACK [None]
